FAERS Safety Report 9125607 (Version 1)
Quarter: 2013Q1

REPORT INFORMATION
  Report Type: Spontaneous
  Country: DE (occurrence: DE)
  Receive Date: 20130227
  Receipt Date: 20130227
  Transmission Date: 20140127
  Serious: Yes (Other)
  Sender: FDA-Public Use
  Company Number: GXKR2013DE000962

PATIENT
  Sex: 0

DRUGS (6)
  1. METHADONE [Suspect]
     Dosage: MATERNAL DOSE: 5 [ML/D ], 0.-40.6 GW
     Route: 064
  2. FLUNINOC [Suspect]
     Dosage: MATERNAL DOSE: UKN, 0.-40.6 GW
     Route: 064
  3. ZYPREXA [Concomitant]
     Dosage: MATERNAL DOSE: 10 [MG/D , 0.-5- GW]
     Route: 064
  4. SEROQUEL [Concomitant]
     Dosage: MATERNAL DOSE: 300 [MG/D UP TO 200], 0.-5- GW
     Route: 064
  5. CITALOPRAM [Concomitant]
     Indication: DEPRESSION
     Dosage: MATERNAL DOSE: 60 MG/D, 0.-5 GW
     Route: 064
  6. FOLIC ACID [Concomitant]
     Dosage: MATERNAL DOSE: 0.4 MG/D
     Route: 064

REACTIONS (2)
  - Low birth weight baby [Recovered/Resolved]
  - Drug withdrawal syndrome neonatal [Recovered/Resolved]
